FAERS Safety Report 10721658 (Version 2)
Quarter: 2015Q1

REPORT INFORMATION
  Report Type: Report from Study
  Country: US (occurrence: US)
  Receive Date: 20150119
  Receipt Date: 20150123
  Transmission Date: 20150721
  Serious: Yes (Other)
  Sender: FDA-Public Use
  Company Number: US-GILEAD-2015-0131746

PATIENT
  Age: 74 Year
  Sex: Male

DRUGS (1)
  1. RANOLAZINE [Suspect]
     Active Substance: RANOLAZINE
     Indication: ANGINA PECTORIS
     Dosage: 1000 MG, UNK
     Route: 048

REACTIONS (6)
  - Stent placement [Unknown]
  - Vascular graft [Unknown]
  - Lipids abnormal [Unknown]
  - Arthropathy [Unknown]
  - General physical condition abnormal [Unknown]
  - Terminal state [Unknown]
